FAERS Safety Report 7324635-1 (Version None)
Quarter: 2011Q1

REPORT INFORMATION
  Report Type: 
  Country: None (occurrence: None)
  Receive Date: 20110301
  Receipt Date: 20110218
  Transmission Date: 20110831
  Serious: Yes (Life-Threatening, Hospitalization)
  Sender: FDA-Public Use
  Company Number: US-BAXTER-2010BH018728

PATIENT
  Age: 67 Year
  Sex: Male
  Weight: 81 kg

DRUGS (3)
  1. DIANEAL [Suspect]
     Indication: PERITONEAL DIALYSIS
     Route: 033
     Dates: end: 20100101
  2. DIANEAL [Suspect]
     Indication: PERITONEAL DIALYSIS
     Route: 033
     Dates: end: 20100101
  3. EXTRANEAL [Suspect]
     Indication: RENAL FAILURE CHRONIC
     Route: 033
     Dates: start: 20100401, end: 20100502

REACTIONS (9)
  - VOMITING [None]
  - COUGH [None]
  - ULTRAFILTRATION FAILURE [None]
  - DECREASED APPETITE [None]
  - HAEMOGLOBIN DECREASED [None]
  - INFECTION [None]
  - WEIGHT DECREASED [None]
  - ASTHENIA [None]
  - NAUSEA [None]
